FAERS Safety Report 16961167 (Version 1)
Quarter: 2019Q4

REPORT INFORMATION
  Report Type: Spontaneous
  Country: PT (occurrence: PT)
  Receive Date: 20191025
  Receipt Date: 20191025
  Transmission Date: 20200122
  Serious: Yes (Other)
  Sender: FDA-Public Use
  Company Number: PT-GILEAD-2019-0434019

PATIENT
  Age: 46 Year
  Sex: Male

DRUGS (2)
  1. TRUVADA [Suspect]
     Active Substance: EMTRICITABINE\TENOFOVIR DISOPROXIL FUMARATE
     Indication: HIV INFECTION
     Dosage: UNK
     Route: 065
     Dates: start: 20140311
  2. ATV [Concomitant]
     Indication: HIV INFECTION
     Dosage: UNK
     Dates: start: 20140311

REACTIONS (5)
  - Sleep apnoea syndrome [Unknown]
  - Obesity [Unknown]
  - Osteoporosis [Unknown]
  - Acute coronary syndrome [Unknown]
  - Dyslipidaemia [Unknown]
